FAERS Safety Report 15016278 (Version 1)
Quarter: 2018Q2

REPORT INFORMATION
  Report Type: Report from Study
  Country: PR (occurrence: PR)
  Receive Date: 20180615
  Receipt Date: 20180615
  Transmission Date: 20180711
  Serious: Yes (Hospitalization)
  Sender: FDA-Public Use
  Company Number: PR-JNJFOC-20180616552

PATIENT
  Sex: Female

DRUGS (10)
  1. LYRICA [Concomitant]
     Active Substance: PREGABALIN
  2. CYMBALTA [Concomitant]
     Active Substance: DULOXETINE HYDROCHLORIDE
  3. IMBRUVICA [Suspect]
     Active Substance: IBRUTINIB
     Indication: CHRONIC LYMPHOCYTIC LEUKAEMIA
     Route: 048
     Dates: start: 20180509, end: 2018
  4. GABAPENTIN. [Concomitant]
     Active Substance: GABAPENTIN
  5. OMEPRAZOLE. [Concomitant]
     Active Substance: OMEPRAZOLE
  6. ASPIRIN. [Concomitant]
     Active Substance: ASPIRIN
  7. HUMULIN NOS [Concomitant]
     Active Substance: INSULIN HUMAN
  8. SIMVASTATIN. [Concomitant]
     Active Substance: SIMVASTATIN
  9. IMBRUVICA [Suspect]
     Active Substance: IBRUTINIB
     Indication: CHRONIC LYMPHOCYTIC LEUKAEMIA
     Route: 048
     Dates: start: 20180330, end: 2018
  10. NOVOLIN [Concomitant]
     Active Substance: INSULIN HUMAN

REACTIONS (5)
  - Full blood count abnormal [Unknown]
  - Nodule [Recovering/Resolving]
  - Skin discolouration [Recovering/Resolving]
  - Lymphadenopathy [Unknown]
  - White blood cell count increased [Unknown]
